FAERS Safety Report 8576909-4 (Version None)
Quarter: 2012Q3

REPORT INFORMATION
  Report Type: 
  Country: None (occurrence: None)
  Receive Date: 20120725
  Receipt Date: 20120709
  Transmission Date: 20120928
  Serious: Yes (Life-Threatening, Hospitalization)
  Sender: FDA-Public Use
  Company Number: BACL20120006

PATIENT
  Age: 23 Year
  Sex: Female

DRUGS (2)
  1. LAMOTRIGINE [Suspect]
     Indication: PRODUCT USED FOR UNKNOWN INDICATION
     Dosage: 10, 000 - 20, 000MG, ORAL
     Route: 048
  2. BACLOFEN [Suspect]
     Indication: PRODUCT USED FOR UNKNOWN INDICATION
     Dosage: ORAL
     Route: 048

REACTIONS (31)
  - BODY TEMPERATURE DECREASED [None]
  - HYPOKALAEMIA [None]
  - ATRIOVENTRICULAR BLOCK COMPLETE [None]
  - HEART RATE DECREASED [None]
  - ELECTROCARDIOGRAM QT PROLONGED [None]
  - PSYCHOMOTOR RETARDATION [None]
  - BALANCE DISORDER [None]
  - STATUS EPILEPTICUS [None]
  - HYPONATRAEMIA [None]
  - VENTRICULAR TACHYCARDIA [None]
  - VENTRICULAR FIBRILLATION [None]
  - ENCEPHALOPATHY [None]
  - HYPERCAPNIA [None]
  - ARRHYTHMIA SUPRAVENTRICULAR [None]
  - ATAXIA [None]
  - PNEUMONIA ASPIRATION [None]
  - BLOOD CREATINE PHOSPHOKINASE INCREASED [None]
  - CONDUCTION DISORDER [None]
  - HYPOTENSION [None]
  - VOMITING [None]
  - AREFLEXIA [None]
  - VENTRICULAR ARRHYTHMIA [None]
  - SPEECH DISORDER [None]
  - MEMORY IMPAIRMENT [None]
  - MULTIPLE DRUG OVERDOSE INTENTIONAL [None]
  - COMA [None]
  - SUICIDE ATTEMPT [None]
  - RESPIRATORY FAILURE [None]
  - PULSE ABSENT [None]
  - RHABDOMYOLYSIS [None]
  - DEPRESSION [None]
